FAERS Safety Report 17430105 (Version 2)
Quarter: 2020Q1

REPORT INFORMATION
  Report Type: Spontaneous
  Country: US (occurrence: US)
  Receive Date: 20200218
  Receipt Date: 20200227
  Transmission Date: 20200409
  Serious: Yes (Other)
  Sender: FDA-Public Use
  Company Number: US-PFIZER INC-2020071272

PATIENT
  Age: 35 Year
  Sex: Female

DRUGS (1)
  1. PREGABALIN. [Suspect]
     Active Substance: PREGABALIN
     Dosage: 75 MG, 2X/DAY
     Route: 048

REACTIONS (3)
  - Loss of consciousness [Unknown]
  - Drug ineffective [Unknown]
  - Nasopharyngitis [Unknown]
